FAERS Safety Report 9806454 (Version 1)
Quarter: 2014Q1

REPORT INFORMATION
  Report Type: Report from Study
  Country: US (occurrence: US)
  Receive Date: 20140109
  Receipt Date: 20140109
  Transmission Date: 20141002
  Serious: Yes (Hospitalization)
  Sender: FDA-Public Use
  Company Number: US-COVIDIEN/TYCO HEALTHCARE/MALLINCKRODT-T201301770

PATIENT
  Age: 88 Year
  Sex: Female
  Weight: 52.61 kg

DRUGS (19)
  1. OPTIRAY [Suspect]
     Indication: PERCUTANEOUS CORONARY INTERVENTION
     Dosage: 150 MG, PRN
     Route: 042
     Dates: start: 20110712, end: 20110712
  2. CANGRELOR [Suspect]
     Dosage: 4 ML, BOLUS
     Route: 042
     Dates: start: 20110712, end: 20110712
  3. CANGRELOR [Suspect]
     Dosage: 31.2 ML/HR
     Route: 042
     Dates: start: 20110712, end: 20110712
  4. CANGRELOR [Suspect]
     Dosage: 4 CAPSULES
     Route: 048
     Dates: start: 20110712, end: 20110712
  5. CANGRELOR [Suspect]
     Dosage: 4 CAPSULES
     Route: 048
     Dates: start: 20110712, end: 20110712
  6. CLOPIDOGREL [Suspect]
     Dosage: 4 ML, BOLUS
     Route: 042
     Dates: start: 20110712, end: 20110712
  7. CLOPIDOGREL [Suspect]
     Dosage: 31.2 ML/HR
     Route: 042
     Dates: start: 20110712, end: 20110712
  8. CLOPIDOGREL [Suspect]
     Dosage: 4 CAPSULES
     Route: 048
     Dates: start: 20110712, end: 20110712
  9. CLOPIDOGREL [Suspect]
     Dosage: 4 CAPSULES
     Route: 048
     Dates: start: 20110712, end: 20110712
  10. PLACEBO [Suspect]
     Dosage: 4 ML, BOLUS
     Route: 042
     Dates: start: 20110712, end: 20110712
  11. PLACEBO [Suspect]
     Dosage: 31.2 ML/HR
     Route: 042
     Dates: start: 20110712, end: 20110712
  12. PLACEBO [Suspect]
     Dosage: 4 CAPSULES
     Route: 048
     Dates: start: 20110712, end: 20110712
  13. PLACEBO [Suspect]
     Dosage: 4 CAPSULES
     Route: 048
     Dates: start: 20110712, end: 20110712
  14. ASPIRIN [Concomitant]
     Dosage: 325 MG PRIOR TO RANDOMIZATION
  15. ASPIRIN [Concomitant]
     Dosage: 325 MG POST PROCEDURE
     Dates: start: 20110712, end: 20110712
  16. ASPIRIN [Concomitant]
     Dosage: 325 MG PRIOR TO DISCHARGE
     Dates: start: 20110714, end: 20110714
  17. HEPARIN [Concomitant]
     Dosage: UNFRACTIONATED HEPARIN BEFORE/DURING PROCEDURE
     Dates: start: 20110712, end: 20110712
  18. CLOPIDOGREL [Concomitant]
     Dosage: 75 MG POST PROCEDURE
     Dates: start: 20110712, end: 20110712
  19. CLOPIDOGREL [Concomitant]
     Dosage: 75 MG AT DISCHARGE
     Dates: start: 20110714, end: 20110714

REACTIONS (1)
  - Pulmonary oedema [Recovered/Resolved]
